FAERS Safety Report 14312467 (Version 3)
Quarter: 2020Q1

REPORT INFORMATION
  Report Type: Spontaneous
  Country: US (occurrence: US)
  Receive Date: 20171221
  Receipt Date: 20200204
  Transmission Date: 20200409
  Serious: No
  Sender: FDA-Public Use
  Company Number: US-PFIZER INC-2017538786

PATIENT
  Age: 50 Year
  Sex: Male
  Weight: 86.18 kg

DRUGS (4)
  1. GENOTROPIN MQ [Suspect]
     Active Substance: SOMATROPIN
     Indication: ASTHENIA
     Dosage: 0.2 MG INJECTED DAILY
     Dates: start: 201707, end: 201710
  2. GENOTROPIN MQ [Suspect]
     Active Substance: SOMATROPIN
     Dosage: 0.2 MG, DAILY
  3. GENOTROPIN MQ [Suspect]
     Active Substance: SOMATROPIN
     Indication: ENERGY INCREASED
     Dosage: 1.6 MG, DAILY
     Dates: start: 2018
  4. GENOTROPIN MQ [Suspect]
     Active Substance: SOMATROPIN
     Indication: WEIGHT DECREASED
     Dosage: 0.4 MG, DAILY
     Dates: start: 201710

REACTIONS (4)
  - Product dose omission [Unknown]
  - Drug ineffective for unapproved indication [Not Recovered/Not Resolved]
  - Off label use [Not Recovered/Not Resolved]
  - Product dispensing error [Unknown]

NARRATIVE: CASE EVENT DATE: 201707
